FAERS Safety Report 4506409-X (Version None)
Quarter: 2004Q4

REPORT INFORMATION
  Report Type: 
  Country: None (occurrence: None)
  Receive Date: 20041025
  Receipt Date: 20040730
  Transmission Date: 20050328
  Serious: Yes (Other)
  Sender: FDA-Public Use
  Company Number: US-JNJFOC-20040800597

PATIENT
  Age: 73 Year
  Sex: Female
  Weight: 68.4932 kg

DRUGS (6)
  1. REMICADE [Suspect]
     Indication: RHEUMATOID ARTHRITIS
     Dosage: 300 MG, INTRAVENOUS
     Route: 042
     Dates: start: 20040217
  2. PREDNISONE [Concomitant]
  3. METHOTREXATE SODIUM [Concomitant]
  4. EVISTA [Concomitant]
  5. CALCIUM (CALCIUM) [Concomitant]
  6. VITAMIN D [Concomitant]

REACTIONS (1)
  - EYE INFECTION TOXOPLASMAL [None]
